FAERS Safety Report 6674967-5 (Version None)
Quarter: 2010Q2

REPORT INFORMATION
  Report Type: 
  Country: None (occurrence: None)
  Receive Date: 20100409
  Receipt Date: 20100406
  Transmission Date: 20101027
  Serious: Yes (Death, Hospitalization)
  Sender: FDA-Public Use
  Company Number: FR-CELGENEUS-056-C5013-09100613

PATIENT
  Sex: Male
  Weight: 68 kg

DRUGS (24)
  1. CC-5013 [Suspect]
     Indication: NON-HODGKIN'S LYMPHOMA
     Route: 048
     Dates: start: 20090923, end: 20091006
  2. LMWH [Concomitant]
     Indication: DRUG USE FOR UNKNOWN INDICATION
     Route: 065
  3. OMEPRAZOLE [Concomitant]
     Route: 048
  4. OMEPRAZOLE [Concomitant]
     Route: 048
  5. GAVISCON [Concomitant]
     Route: 048
  6. CORTANCYL [Concomitant]
     Route: 065
     Dates: start: 20071201
  7. PRIMPERAN INJ [Concomitant]
     Indication: NAUSEA
     Route: 065
  8. PRIMPERAN INJ [Concomitant]
     Indication: VOMITING
  9. LASIX [Concomitant]
     Indication: HYPERTENSION
     Route: 048
  10. APROVEL [Concomitant]
     Indication: HYPERTENSION
     Route: 048
  11. HUMALOG [Concomitant]
     Route: 058
  12. LANTUS [Concomitant]
     Route: 058
  13. NEXIUM [Concomitant]
     Route: 048
  14. BRICANYL [Concomitant]
     Indication: ASTHMA
     Route: 055
  15. CEFIXIME CHEWABLE [Concomitant]
     Route: 065
  16. TOPLEXIL [Concomitant]
     Indication: COUGH
     Route: 048
  17. ACETAMINOPHEN [Concomitant]
     Indication: PAIN
     Route: 048
  18. LEVOCARNIL [Concomitant]
     Indication: DRUG USE FOR UNKNOWN INDICATION
     Route: 065
     Dates: start: 20100101
  19. IMOVANE [Concomitant]
     Indication: DRUG USE FOR UNKNOWN INDICATION
     Route: 065
     Dates: start: 20100101
  20. ORACILLINE [Concomitant]
     Indication: DRUG USE FOR UNKNOWN INDICATION
     Route: 048
     Dates: start: 20100101
  21. VOGALENE [Concomitant]
     Indication: DRUG USE FOR UNKNOWN INDICATION
     Route: 048
     Dates: start: 20100101
  22. SONDALIS ISO [Concomitant]
     Indication: DRUG USE FOR UNKNOWN INDICATION
     Route: 065
     Dates: start: 20100101
  23. ZELITREX [Concomitant]
     Indication: DRUG USE FOR UNKNOWN INDICATION
     Route: 065
     Dates: start: 20100101
  24. LEDERFOLINE [Concomitant]
     Indication: DRUG USE FOR UNKNOWN INDICATION
     Route: 065
     Dates: start: 20100101

REACTIONS (7)
  - MALNUTRITION [None]
  - NEUTROPENIA [None]
  - NOSOCOMIAL INFECTION [None]
  - PNEUMOCOCCAL SEPSIS [None]
  - PNEUMONIA [None]
  - SEPTIC SHOCK [None]
  - WEIGHT DECREASED [None]
